FAERS Safety Report 17027021 (Version 1)
Quarter: 2019Q4

REPORT INFORMATION
  Report Type: Spontaneous
  Country: US (occurrence: US)
  Receive Date: 20191113
  Receipt Date: 20191113
  Transmission Date: 20200122
  Serious: Yes (Life-Threatening, Hospitalization, Other)
  Sender: FDA-Public Use
  Company Number: US-PROCTER_AND_GAMBLE-GS19122469

PATIENT
  Age: 12 Year
  Sex: Female

DRUGS (1)
  1. DIPHENHYDRAMINE HCL [Suspect]
     Active Substance: DIPHENHYDRAMINE HYDROCHLORIDE
     Dosage: 7500 MILLIGRAM
     Route: 048

REACTIONS (15)
  - Cerebrovascular accident [Unknown]
  - Circulatory collapse [Unknown]
  - Electrocardiogram QT prolonged [Unknown]
  - Ventricular tachycardia [Unknown]
  - Ventricular arrhythmia [Unknown]
  - Echocardiogram abnormal [Unknown]
  - Defect conduction intraventricular [Unknown]
  - Bezoar [Unknown]
  - Ventricular dysfunction [Recovering/Resolving]
  - Atrioventricular block second degree [Unknown]
  - Anticholinergic syndrome [Unknown]
  - Overdose [Unknown]
  - Seizure [Unknown]
  - Electrocardiogram QRS complex prolonged [Recovering/Resolving]
  - Cardiovascular disorder [Unknown]
